FAERS Safety Report 6372572-1 (Version None)
Quarter: 2009Q3

REPORT INFORMATION
  Report Type: 
  Country: None (occurrence: None)
  Receive Date: 20090924
  Receipt Date: 20080924
  Transmission Date: 20100115
  Serious: Yes (Other)
  Sender: FDA-Public Use
  Company Number: US-ASTRAZENECA-2008UW20100

PATIENT
  Age: 20 Year
  Sex: Female
  Weight: 102.1 kg

DRUGS (7)
  1. SEROQUEL [Suspect]
     Indication: BIPOLAR DISORDER
     Route: 048
  2. TAPAZOLE [Concomitant]
  3. INDERAL [Concomitant]
  4. CELEXA [Concomitant]
  5. LITHIUM [Concomitant]
  6. TRAZODONE HCL [Concomitant]
  7. ECT THERAPY [Concomitant]

REACTIONS (2)
  - SUICIDAL IDEATION [None]
  - WEIGHT INCREASED [None]
